FAERS Safety Report 9105763 (Version 1)
Quarter: 2013Q1

REPORT INFORMATION
  Report Type: Spontaneous
  Country: US (occurrence: US)
  Receive Date: 20130220
  Receipt Date: 20130220
  Transmission Date: 20140127
  Serious: Yes (Other)
  Sender: FDA-Public Use
  Company Number: US-RB-050083-13

PATIENT
  Age: 23 Year
  Sex: Female

DRUGS (5)
  1. GENERIC BUPRENORPHINE [Suspect]
     Indication: DRUG DEPENDENCE
     Route: 060
     Dates: start: 201301
  2. ROXICODONE [Suspect]
     Indication: DRUG ABUSE
     Dosage: VARIED DOSING
     Route: 048
     Dates: end: 201301
  3. ALCOHOL [Suspect]
     Indication: ALCOHOL USE
     Dosage: OCCASSIONALLY DRANK ALCOHOL
     Route: 048
  4. NICOTINE [Suspect]
     Indication: TOBACCO USER
     Dosage: 1 TO 1 1/2 PACKS DAILY
     Route: 055
  5. SUBOXONE FILM [Suspect]
     Indication: PRODUCT USED FOR UNKNOWN INDICATION
     Dosage: SUBOXONE FILM; DOSING DETAILS UNKNOWN
     Route: 065

REACTIONS (8)
  - Dyspnoea [Recovered/Resolved]
  - Exposure during pregnancy [Recovered/Resolved]
  - Wrong technique in drug usage process [Not Recovered/Not Resolved]
  - Vaginal haemorrhage [Not Recovered/Not Resolved]
  - Abdominal pain [Not Recovered/Not Resolved]
  - Abortion spontaneous [Recovered/Resolved]
  - Depression [Not Recovered/Not Resolved]
  - Pregnancy [None]
